FAERS Safety Report 14232747 (Version 1)
Quarter: 2017Q4

REPORT INFORMATION
  Report Type: Report from Study
  Country: US (occurrence: US)
  Receive Date: 20171128
  Receipt Date: 20171128
  Transmission Date: 20180321
  Serious: Yes (Other)
  Sender: FDA-Public Use
  Company Number: US-BAUSCH-BL-2017-032387

PATIENT
  Age: 73 Year
  Sex: Male

DRUGS (2)
  1. DEXAMETHASONE. [Suspect]
     Active Substance: DEXAMETHASONE
     Indication: OPHTHALMIC HERPES SIMPLEX
     Dosage: NON-PRESERVED DEXAMETHASONE (12 HOUR)
     Route: 061
  2. ACICLOVIR [Concomitant]
     Active Substance: ACYCLOVIR
     Indication: OPHTHALMIC HERPES SIMPLEX
     Route: 048

REACTIONS (1)
  - Ulcerative keratitis [Recovered/Resolved]
